FAERS Safety Report 4682026-6 (Version None)
Quarter: 2005Q2

REPORT INFORMATION
  Report Type: 
  Country: None (occurrence: None)
  Receive Date: 20050606
  Receipt Date: 20050525
  Transmission Date: 20051028
  Serious: Yes (Hospitalization)
  Sender: FDA-Public Use
  Company Number: US-JNJFOC-20031002266

PATIENT
  Sex: Female
  Weight: 71.67 kg

DRUGS (20)
  1. REMICADE [Suspect]
     Dosage: 4 VIALS, 1 IN 1 DAY(S)
     Route: 042
  2. REMICADE [Suspect]
     Indication: CROHN'S DISEASE
     Dosage: 4 VIALS, 1 IN 1 DAY(S)
     Route: 042
  3. ENALAPRIL MALEATE [Suspect]
     Indication: HYPERTENSION
  4. NEXIUM [Concomitant]
  5. CIPRO [Concomitant]
  6. FOSAMAX [Concomitant]
  7. AMITRIPTYLINE [Concomitant]
  8. AMITRIPTYLINE [Concomitant]
  9. PREMARIN [Concomitant]
  10. TRIAMTERENE AND HYDROCHLOROTHIAZIDE [Concomitant]
     Dosage: 75/50 MG
  11. TRIAMTERENE AND HYDROCHLOROTHIAZIDE [Concomitant]
  12. VIOXX [Concomitant]
  13. VIOXX [Concomitant]
  14. PREMARIN [Concomitant]
  15. HYDROCHLOROTHIAZIDE [Concomitant]
  16. ANTIVERT [Concomitant]
  17. ANTIVERT [Concomitant]
  18. ASPIRIN [Concomitant]
     Dosage: BABY ASPIRIN
  19. VITAMIN B-12 [Concomitant]
  20. ZANTAC [Concomitant]

REACTIONS (29)
  - ANEURYSM [None]
  - ANGIONEUROTIC OEDEMA [None]
  - BLOOD BICARBONATE INCREASED [None]
  - BLOOD CHLORIDE DECREASED [None]
  - BLOOD GLUCOSE INCREASED [None]
  - BLOOD POTASSIUM DECREASED [None]
  - BLOOD SODIUM DECREASED [None]
  - BLOOD URINE PRESENT [None]
  - CATHETERISATION CARDIAC [None]
  - CEREBROVASCULAR ACCIDENT [None]
  - DIZZINESS [None]
  - DRUG HYPERSENSITIVITY [None]
  - ERYTHEMA [None]
  - FACE OEDEMA [None]
  - HAEMATOCRIT DECREASED [None]
  - HYPERSENSITIVITY [None]
  - JOINT RANGE OF MOTION DECREASED [None]
  - MASS [None]
  - MUSCULAR WEAKNESS [None]
  - NAUSEA [None]
  - NEUTROPHIL PERCENTAGE INCREASED [None]
  - OEDEMA PERIPHERAL [None]
  - PHARYNGEAL OEDEMA [None]
  - PLATELET COUNT DECREASED [None]
  - PRURITUS [None]
  - RASH MACULO-PAPULAR [None]
  - SERUM SICKNESS [None]
  - SPEECH DISORDER [None]
  - WHITE BLOOD CELL COUNT INCREASED [None]
